FAERS Safety Report 7422957-7 (Version None)
Quarter: 2011Q2

REPORT INFORMATION
  Report Type: 
  Country: None (occurrence: None)
  Receive Date: 20110419
  Receipt Date: 20110407
  Transmission Date: 20111010
  Serious: Yes (Death, Other)
  Sender: FDA-Public Use
  Company Number: US-SANOFI-AVENTIS-2011SA022155

PATIENT
  Age: 64 Year
  Sex: Female

DRUGS (12)
  1. ALL OTHER THERAPEUTIC PRODUCTS [Concomitant]
  2. LEVOTHYROXINE SODIUM [Concomitant]
  3. ASPIRIN [Concomitant]
  4. LACTULOSE [Concomitant]
  5. PRAVASTATIN [Concomitant]
  6. FISH OIL [Concomitant]
  7. LEVODOPA [Concomitant]
  8. ALPRAZOLAM [Concomitant]
  9. INSULIN [Concomitant]
  10. PANTOPRAZOLE [Concomitant]
  11. MULTAQ [Suspect]
     Route: 048
     Dates: start: 20100601
  12. AMIODARONE [Concomitant]
     Dates: end: 20100601

REACTIONS (2)
  - ATRIAL FIBRILLATION [None]
  - DEATH [None]
